FAERS Safety Report 8697374 (Version 2)
Quarter: 2012Q4

REPORT INFORMATION
  Report Type: 
  Country: US (occurrence: US)
  Receive Date: 20120801
  Receipt Date: 20121026
  Transmission Date: 20130627
  Serious: Yes (Life-Threatening, Hospitalization, Disabling)
  Sender: FDA-Public Use
  Company Number: US-JNJFOC-20120713828

PATIENT
  Age: 49 None
  Sex: Male
  Weight: 85.73 kg

DRUGS (8)
  1. REMICADE [Suspect]
     Indication: COLITIS ULCERATIVE
     Route: 042
     Dates: start: 20120718, end: 20120720
  2. PREDNISONE [Suspect]
     Indication: COLITIS ULCERATIVE
     Route: 048
     Dates: start: 201112
  3. IMURAN [Suspect]
     Indication: COLITIS ULCERATIVE
     Route: 048
     Dates: start: 20120404, end: 20120720
  4. FISH OIL [Concomitant]
     Route: 065
  5. LIPITOR [Concomitant]
     Route: 065
  6. NIASPAN [Concomitant]
     Route: 065
  7. CO-ENZYME Q10 [Concomitant]
     Route: 065
  8. BABY ASPIRIN [Concomitant]
     Route: 065

REACTIONS (2)
  - Meningitis listeria [Not Recovered/Not Resolved]
  - Coma [Not Recovered/Not Resolved]
